FAERS Safety Report 7462902-1 (Version None)
Quarter: 2011Q2

REPORT INFORMATION
  Report Type: 
  Country: None (occurrence: None)
  Receive Date: 20110506
  Receipt Date: 20110308
  Transmission Date: 20111010
  Serious: No
  Sender: FDA-Public Use
  Company Number: US-BAYER-2011-021356

PATIENT
  Sex: Female

DRUGS (6)
  1. AVELOX [Suspect]
     Indication: PRODUCT USED FOR UNKNOWN INDICATION
  2. VITAMIN D [Concomitant]
  3. METHOTREXAT [Concomitant]
  4. FOSAMAX [Concomitant]
  5. NAPROXEN SODIUM [Concomitant]
  6. FOLIC ACID [Concomitant]

REACTIONS (2)
  - SOMNOLENCE [None]
  - CONFUSIONAL STATE [None]
